FAERS Safety Report 21554370 (Version 1)
Quarter: 2022Q4

REPORT INFORMATION
  Report Type: Spontaneous
  Country: CN (occurrence: CN)
  Receive Date: 20221104
  Receipt Date: 20221104
  Transmission Date: 20230112
  Serious: Yes (Hospitalization)
  Sender: FDA-Public Use
  Company Number: CN-MYLANLABS-2022M1117873

PATIENT
  Sex: Female

DRUGS (1)
  1. CARDURA XL [Suspect]
     Active Substance: DOXAZOSIN MESYLATE
     Indication: Nephrolithiasis
     Dosage: 3 DOSAGE FORM, (3 PILLS)
     Route: 065

REACTIONS (4)
  - Tachycardia [Unknown]
  - Palpitations [Unknown]
  - Peripheral swelling [Unknown]
  - Agitation [Unknown]
